FAERS Safety Report 17995386 (Version 2)
Quarter: 2020Q3

REPORT INFORMATION
  Report Type: Report from Study
  Country: BR (occurrence: BR)
  Receive Date: 20200708
  Receipt Date: 20200721
  Transmission Date: 20201103
  Serious: Yes (Other)
  Sender: FDA-Public Use
  Company Number: NVSC2020BR190159

PATIENT
  Sex: Male
  Weight: 67 kg

DRUGS (12)
  1. SIMBRINZA [Concomitant]
     Active Substance: BRIMONIDINE TARTRATE\BRINZOLAMIDE
     Indication: GLAUCOMA
     Dosage: 1 DROP IN EACH EYE, BID, STARTED 2 YEARS AGO
     Route: 031
  2. CLOPIDOGREL [Concomitant]
     Active Substance: CLOPIDOGREL BISULFATE
     Indication: PROPHYLAXIS
  3. HYABAK [Concomitant]
     Active Substance: HYALURONATE SODIUM
     Indication: EYE LUBRICATION THERAPY
     Dosage: 1 DRP IN EACH EYE, 4 OR 5 TIMES A DAY (STARTED 3 OR 4 YEARS AGO)
     Route: 031
  4. CLOPIDOGREL [Concomitant]
     Active Substance: CLOPIDOGREL BISULFATE
     Indication: CARDIAC DISORDER
     Dosage: 1 TABLET OF 0.4MG, QD, STARTED 15 YEARS AGO
     Route: 048
  5. TAMSULON [Concomitant]
     Indication: URINARY TRACT DISORDER
     Dosage: 1 CAPSULE OF 0.4MG, QD, STARTED OVER 5 YEARS AGO
     Route: 048
  6. ATORVASTATIN [Concomitant]
     Active Substance: ATORVASTATIN
     Indication: CARDIAC DISORDER
     Dosage: 1 TABLET OF 20 MG, QD, STARTED 20 YEARS AGO
     Route: 048
  7. TRAVATAN [Suspect]
     Active Substance: TRAVOPROST
     Indication: GLAUCOMA
     Dosage: 1 DRP IN EACH EYE, QD, STARTED 10 YEARS AGO
     Route: 031
  8. ATENOLOL. [Concomitant]
     Active Substance: ATENOLOL
     Indication: CARDIAC DISORDER
     Dosage: 1 TABLET OF 100MG, QD, STARTED 5 YEARS AGO
     Route: 048
  9. AMIODARONE [Concomitant]
     Active Substance: AMIODARONE
     Indication: ARRHYTHMIA
     Dosage: 1 TABLET OF 200MG, QD, STARTED 20 YEARS AGO
     Route: 048
  10. MAREVAN [Concomitant]
     Active Substance: WARFARIN SODIUM
     Indication: CARDIAC DISORDER
     Dosage: 1 TABLET OF 5 MG, ONCE A DAY, TWICE A WEEK, STARTED 12 YEARS AGO
     Route: 048
  11. MAREVAN [Concomitant]
     Active Substance: WARFARIN SODIUM
     Indication: PROPHYLAXIS
     Dosage: 1 TABLET OF 2.5 MG, ONCE A DAY, FIVE DAYS A WEEK
     Route: 048
  12. PURAN [Concomitant]
     Active Substance: LEVOTHYROXINE SODIUM
     Indication: THYROID DISORDER
     Dosage: 1 TABLET OF 37.5 MG, QD, STARTED 10 YEARS AGO
     Route: 048

REACTIONS (2)
  - Prostate cancer [Not Recovered/Not Resolved]
  - Myocardial infarction [Recovered/Resolved]
